FAERS Safety Report 8990394 (Version 1)
Quarter: 2012Q4

REPORT INFORMATION
  Report Type: Report from Study
  Country: DE (occurrence: DE)
  Receive Date: 20121228
  Receipt Date: 20121228
  Transmission Date: 20130627
  Serious: Yes (Hospitalization)
  Sender: FDA-Public Use
  Company Number: DE-BAXTER-2012BAX027770

PATIENT
  Age: 67 Year
  Sex: Male

DRUGS (4)
  1. ENDOXAN 1G [Suspect]
     Indication: CLL
     Route: 042
  2. ENDOXAN 1G [Suspect]
     Route: 042
     Dates: start: 20080130
  3. PENTOSTATIN [Suspect]
     Indication: CLL
     Route: 042
  4. PENTOSTATIN [Suspect]
     Route: 042
     Dates: start: 20080130

REACTIONS (2)
  - Nausea [Recovered/Resolved]
  - Headache [Recovered/Resolved]
